FAERS Safety Report 8162502-4 (Version None)
Quarter: 2012Q1

REPORT INFORMATION
  Report Type: 
  Country: None (occurrence: None)
  Receive Date: 20120224
  Receipt Date: 20120224
  Transmission Date: 20120608
  Serious: Yes (Other)
  Sender: FDA-Public Use
  Company Number: None

PATIENT
  Age: 35 Year
  Sex: Male
  Weight: 86.182 kg

DRUGS (8)
  1. NEXIUM [Concomitant]
     Indication: GASTROOESOPHAGEAL REFLUX DISEASE
     Dosage: 40 MG
     Route: 048
     Dates: start: 20120113, end: 20120119
  2. NEXIUM [Concomitant]
     Indication: CHEST PAIN
     Dosage: 40 MG
     Route: 048
     Dates: start: 20120113, end: 20120119
  3. NEXIUM [Concomitant]
     Indication: REBOUND EFFECT
     Dosage: 40 MG
     Route: 048
     Dates: start: 20120113, end: 20120119
  4. NEXIUM [Concomitant]
     Indication: ANXIETY
     Dosage: 40 MG
     Route: 048
     Dates: start: 20120113, end: 20120119
  5. OMEPRAZOLE [Suspect]
     Indication: REBOUND EFFECT
     Dosage: 40 MG
     Route: 048
     Dates: start: 20111217, end: 20120113
  6. OMEPRAZOLE [Suspect]
     Indication: ANXIETY
     Dosage: 40 MG
     Route: 048
     Dates: start: 20111217, end: 20120113
  7. OMEPRAZOLE [Suspect]
     Indication: CHEST PAIN
     Dosage: 40 MG
     Route: 048
     Dates: start: 20111217, end: 20120113
  8. OMEPRAZOLE [Suspect]
     Indication: GASTROOESOPHAGEAL REFLUX DISEASE
     Dosage: 40 MG
     Route: 048
     Dates: start: 20111217, end: 20120113

REACTIONS (5)
  - CHEST PAIN [None]
  - REBOUND EFFECT [None]
  - ANXIETY [None]
  - GASTROOESOPHAGEAL REFLUX DISEASE [None]
  - CONDITION AGGRAVATED [None]
